FAERS Safety Report 8882120 (Version 2)
Quarter: 2013Q2

REPORT INFORMATION
  Report Type: Report from Study
  Country: JP (occurrence: JP)
  Receive Date: 20121102
  Receipt Date: 20130520
  Transmission Date: 20140414
  Serious: Yes (Other)
  Sender: FDA-Public Use
  Company Number: JP-009507513-1210JPN013232

PATIENT
  Age: 56 Year
  Sex: Female
  Weight: 94 kg

DRUGS (10)
  1. PEGINTRON [Suspect]
     Indication: CHRONIC HEPATITIS C
     Dosage: 0.67 MICROGRAM PER KILOGRAM, QW
     Route: 058
     Dates: start: 20120605, end: 20120626
  2. PEGINTRON [Suspect]
     Dosage: 1.59 MICROGRAM PER KILOGRAM, QW
     Route: 058
     Dates: start: 20120522, end: 20120522
  3. PEGINTRON [Suspect]
     Dosage: 1.5 MICROGRAM PER KILOGRAM, QW
     Route: 058
     Dates: start: 20120529, end: 20120529
  4. REBETOL [Suspect]
     Indication: CHRONIC HEPATITIS C
     Dosage: 400 MG, QD
     Route: 048
     Dates: start: 20120626, end: 20120703
  5. REBETOL [Suspect]
     Dosage: 800 MG, QD
     Route: 048
     Dates: start: 20120522, end: 20120611
  6. REBETOL [Suspect]
     Dosage: 600 MG, QD
     Dates: start: 20120612, end: 20120625
  7. TELAVIC [Suspect]
     Indication: CHRONIC HEPATITIS C
     Dosage: 1500 MG, QD
     Route: 048
     Dates: start: 20120522, end: 20120703
  8. URSO [Concomitant]
     Indication: CHRONIC HEPATITIS C
     Dosage: 300 MG, QD FORMULATION: POR
     Route: 048
     Dates: start: 20110802, end: 20111107
  9. URSO [Concomitant]
     Dosage: 600 MG, QD FORMULATION: POR
     Route: 048
     Dates: start: 20111108, end: 20120613
  10. RHYTHMY [Concomitant]
     Indication: INSOMNIA
     Dosage: 1 DF, PRN
     Route: 048
     Dates: start: 20120530, end: 20120607

REACTIONS (3)
  - Retinopathy [Recovering/Resolving]
  - Neutrophil count decreased [Recovered/Resolved]
  - Haemoglobin decreased [Recovered/Resolved]
